FAERS Safety Report 13043743 (Version 1)
Quarter: 2016Q4

REPORT INFORMATION
  Report Type: Spontaneous
  Country: US (occurrence: US)
  Receive Date: 20161220
  Receipt Date: 20161220
  Transmission Date: 20170207
  Serious: No
  Sender: FDA-Public Use
  Company Number: US-ALVOGEN-2016-ALVOGEN-029800

PATIENT
  Age: 73 Year
  Sex: Male

DRUGS (1)
  1. RIVASTIGMINE. [Suspect]
     Active Substance: RIVASTIGMINE
     Indication: MEMORY IMPAIRMENT
     Route: 062
     Dates: start: 20161001, end: 20161002

REACTIONS (2)
  - Product adhesion issue [Unknown]
  - Diarrhoea [Unknown]

NARRATIVE: CASE EVENT DATE: 20161002
